FAERS Safety Report 7818028-8 (Version None)
Quarter: 2011Q4

REPORT INFORMATION
  Report Type: 
  Country: None (occurrence: None)
  Receive Date: 20111017
  Receipt Date: 20111003
  Transmission Date: 20120403
  Serious: Yes (Hospitalization)
  Sender: FDA-Public Use
  Company Number: US-BAYER-2011-011273

PATIENT
  Age: 43 Year
  Sex: Female
  Weight: 81.633 kg

DRUGS (8)
  1. MOTRIN [Concomitant]
     Route: 048
  2. ALPRAZOLAM [Concomitant]
     Dosage: UNK
     Route: 048
     Dates: start: 20030901
  3. YASMIN [Suspect]
     Indication: CONTRACEPTION
     Dosage: UNK
     Dates: start: 20031001, end: 20031022
  4. IMITREX [Concomitant]
     Indication: MIGRAINE
     Dosage: UNK
     Dates: start: 20030901
  5. ELAVIL [Concomitant]
     Dosage: UNK
     Route: 048
     Dates: start: 20030701, end: 20040601
  6. NORCO [Concomitant]
  7. METHADONE HCL [Concomitant]
     Indication: PAIN
     Dosage: UNK
     Dates: start: 20030501, end: 20031001
  8. PAXIL [Concomitant]
     Indication: BIPOLAR DISORDER
     Dosage: UNK
     Dates: start: 20000601, end: 20050501

REACTIONS (5)
  - FEELING COLD [None]
  - PERIPHERAL ARTERIAL OCCLUSIVE DISEASE [None]
  - GANGRENE [None]
  - PAIN [None]
  - PAIN IN EXTREMITY [None]
